FAERS Safety Report 9613569 (Version 1)
Quarter: 2013Q4

REPORT INFORMATION
  Report Type: Spontaneous
  Country: US (occurrence: US)
  Receive Date: 20131010
  Receipt Date: 20131010
  Transmission Date: 20140711
  Serious: No
  Sender: FDA-Public Use
  Company Number: US-TEVA-437047USA

PATIENT
  Sex: Female
  Weight: 95.79 kg

DRUGS (1)
  1. NUVIGIL [Suspect]
     Indication: DEPRESSION

REACTIONS (2)
  - Drug ineffective [Unknown]
  - Off label use [Unknown]
